FAERS Safety Report 5758327-7 (Version None)
Quarter: 2008Q2

REPORT INFORMATION
  Report Type: 
  Country: None (occurrence: None)
  Receive Date: 20080604
  Receipt Date: 20080530
  Transmission Date: 20081010
  Serious: Yes (Other)
  Sender: FDA-Public Use
  Company Number: CH-BRISTOL-MYERS SQUIBB COMPANY-14211478

PATIENT
  Age: 52 Year
  Sex: Male

DRUGS (4)
  1. TRITTICO [Suspect]
     Indication: DEPRESSION
     Dosage: IN FEB-2008 STARTED AT DOSE OF 50 MG
     Route: 048
     Dates: start: 20080315
  2. TIATRAL [Concomitant]
  3. ATENOLOL [Concomitant]
  4. SORTIS [Concomitant]

REACTIONS (6)
  - ANGIOEDEMA [None]
  - ARTHRALGIA [None]
  - ARTHRITIS [None]
  - MYALGIA [None]
  - TYPE III IMMUNE COMPLEX MEDIATED REACTION [None]
  - URTICARIA [None]
